FAERS Safety Report 9654417 (Version 2)
Quarter: 2013Q4

REPORT INFORMATION
  Report Type: Spontaneous
  Country: BR (occurrence: BR)
  Receive Date: 20131029
  Receipt Date: 20131219
  Transmission Date: 20140711
  Serious: Yes (Other)
  Sender: FDA-Public Use
  Company Number: PHHY2013BR122073

PATIENT
  Age: 58 Year
  Sex: Female

DRUGS (7)
  1. FORASEQ [Suspect]
     Indication: BRONCHITIS
     Dosage: 1 DF, QD (BOTH TREATMENT)
     Route: 055
  2. ALENDRONATE SODIUM [Suspect]
     Indication: CALCINOSIS
     Dosage: 1 DF, (EVERY WEEK)
  3. GLUCOSAMINE [Suspect]
     Indication: PAIN
     Dosage: 1 DF, QD
     Route: 048
  4. ROQUINOL [Suspect]
     Indication: RHEUMATOID ARTHRITIS
     Dosage: 1 DF, QD
     Route: 048
  5. OMEGA 3 [Suspect]
     Indication: CALCINOSIS
     Dosage: UNK UKN, UNK
  6. DAFLON /01026201/ [Suspect]
     Indication: THROMBOPHLEBITIS
     Dosage: UNK UKN, UNK
  7. MAREVAN [Suspect]
     Indication: ANTICOAGULANT THERAPY
     Dosage: 1 DF, QD
     Route: 048

REACTIONS (12)
  - Increased bronchial secretion [Not Recovered/Not Resolved]
  - Thrombosis [Recovered/Resolved]
  - Thrombophlebitis [Not Recovered/Not Resolved]
  - Gingival bleeding [Recovered/Resolved]
  - Pharyngeal haemorrhage [Recovered/Resolved]
  - Epistaxis [Recovered/Resolved]
  - Blood urine present [Recovered/Resolved]
  - Bladder pain [Recovered/Resolved]
  - Dysuria [Recovered/Resolved]
  - Vocal cord inflammation [Not Recovered/Not Resolved]
  - Influenza [Unknown]
  - Cough [Unknown]
